FAERS Safety Report 5314240-0 (Version None)
Quarter: 2007Q2

REPORT INFORMATION
  Report Type: 
  Country: None (occurrence: None)
  Receive Date: 20070425
  Receipt Date: 20070417
  Transmission Date: 20071010
  Serious: Yes (Other)
  Sender: FDA-Public Use
  Company Number: 2007SP007118

PATIENT
  Sex: Female

DRUGS (2)
  1. NASONEX [Suspect]
     Indication: DRUG USE FOR UNKNOWN INDICATION
     Dosage: ; UNK; NAS
     Route: 045
  2. ZYRTEC [Concomitant]

REACTIONS (3)
  - APHONIA [None]
  - DROOLING [None]
  - DYSKINESIA [None]
